FAERS Safety Report 7529204-6 (Version None)
Quarter: 2011Q2

REPORT INFORMATION
  Report Type: 
  Country: None (occurrence: None)
  Receive Date: 20110607
  Receipt Date: 20110531
  Transmission Date: 20111010
  Serious: Yes (Hospitalization, Other)
  Sender: FDA-Public Use
  Company Number: BR-SANOFI-AVENTIS-2011SA034398

PATIENT
  Age: 31 Year
  Sex: Female
  Weight: 70 kg

DRUGS (3)
  1. METFORMIN HCL [Concomitant]
     Route: 048
  2. LANTUS [Suspect]
     Route: 058
  3. AUTOPEN 24 [Suspect]

REACTIONS (6)
  - PLEURAL EFFUSION [None]
  - HYPOGLYCAEMIA [None]
  - PALLOR [None]
  - PNEUMONIA [None]
  - NASOPHARYNGITIS [None]
  - HYPERHIDROSIS [None]
